FAERS Safety Report 6856918-3 (Version None)
Quarter: 2010Q3

REPORT INFORMATION
  Report Type: 
  Country: None (occurrence: None)
  Receive Date: 20100719
  Receipt Date: 20100712
  Transmission Date: 20110219
  Serious: Yes (Other)
  Sender: FDA-Public Use
  Company Number: US-JNJCH-2010016418

PATIENT
  Age: 46 Year
  Sex: Female
  Weight: 54.4 kg

DRUGS (1)
  1. LISTERINE TOTAL CARE ANTICAVITY MOUTHWASH [Suspect]
     Indication: DENTAL DISORDER PROPHYLAXIS
     Dosage: TEXT:ABOUT AN EIGHTH OF A CAPFUL ONCE DAILY
     Route: 048

REACTIONS (2)
  - APPLICATION SITE PAIN [None]
  - TONGUE BLISTERING [None]
